FAERS Safety Report 7462279-1 (Version None)
Quarter: 2011Q2

REPORT INFORMATION
  Report Type: 
  Country: None (occurrence: None)
  Receive Date: 20110506
  Receipt Date: 20110425
  Transmission Date: 20111010
  Serious: Yes (Death)
  Sender: FDA-Public Use
  Company Number: CA-JNJFOC-20110411084

PATIENT
  Age: 63 Year
  Sex: Male
  Weight: 99.79 kg

DRUGS (10)
  1. PRAVASTATIN [Concomitant]
     Indication: HYPERLIPIDAEMIA
     Route: 048
  2. REMICADE [Suspect]
     Dosage: FIFTH DOSE IN SERIES
     Route: 042
  3. TYLENOL EXTRA STRENGTH [Concomitant]
     Indication: PAIN
     Route: 048
  4. BRICANYL [Concomitant]
     Indication: CHRONIC OBSTRUCTIVE PULMONARY DISEASE
     Route: 055
  5. SERTRALINE [Concomitant]
     Indication: DEPRESSION
     Route: 048
  6. REMICADE [Suspect]
     Indication: ANKYLOSING SPONDYLITIS
     Route: 042
  7. FERROUS FUMERATE [Concomitant]
     Indication: ANAEMIA
     Route: 048
  8. ADVAIR DISKUS 100/50 [Concomitant]
     Indication: CHRONIC OBSTRUCTIVE PULMONARY DISEASE
     Route: 055
  9. PANTOLOC [Concomitant]
     Indication: GASTROINTESTINAL DISORDER THERAPY
     Route: 048
  10. AMLODIPINE BESYLATE [Concomitant]
     Indication: HYPERTENSION
     Route: 048

REACTIONS (1)
  - DEATH [None]
